FAERS Safety Report 19702255 (Version 1)
Quarter: 2021Q3

REPORT INFORMATION
  Report Type: Report from Study
  Country: HN (occurrence: HN)
  Receive Date: 20210814
  Receipt Date: 20210814
  Transmission Date: 20211014
  Serious: Yes (Other)
  Sender: FDA-Public Use
  Company Number: NVSC2021HN181124

PATIENT
  Age: 71 Year
  Sex: Female

DRUGS (2)
  1. CO?DIOVAN [Suspect]
     Active Substance: HYDROCHLOROTHIAZIDE\VALSARTAN
     Indication: PRODUCT USED FOR UNKNOWN INDICATION
     Dosage: 160/12.5 MG (STARTED 2 MONTHS AGO APPROXIMATELY)
     Route: 065
  2. CO?DIOVAN [Suspect]
     Active Substance: HYDROCHLOROTHIAZIDE\VALSARTAN
     Dosage: 320/12.5 MG (STARTED 1 MONTH AGO APPROXIMATELY))
     Route: 065

REACTIONS (5)
  - Hypertension [Unknown]
  - Depressed mood [Unknown]
  - Hypotension [Unknown]
  - Blood pressure fluctuation [Unknown]
  - Drug ineffective [Unknown]
